FAERS Safety Report 4309643-7 (Version None)
Quarter: 2004Q1

REPORT INFORMATION
  Report Type: 
  Country: None (occurrence: None)
  Receive Date: 20040302
  Receipt Date: 20040220
  Transmission Date: 20041129
  Serious: Yes (Other)
  Sender: FDA-Public Use
  Company Number: US-JNJFOC-20040204899

PATIENT
  Age: 51 Year
  Sex: Female

DRUGS (9)
  1. REMICADE [Suspect]
     Indication: RHEUMATOID ARTHRITIS
     Dosage: INTRAVENOUS
     Route: 042
     Dates: start: 20010326, end: 20021201
  2. BEXTRA [Concomitant]
  3. METHOTREXATE (METHOPTREXATE) [Concomitant]
  4. FOLIC ACID [Concomitant]
  5. ZIAC (BISELECT) [Concomitant]
  6. ZOCOR [Concomitant]
  7. CALCIUM (CALCIUM) [Concomitant]
  8. TYLENOL [Concomitant]
  9. PREVACID [Concomitant]

REACTIONS (1)
  - BREAST CANCER IN SITU [None]
